FAERS Safety Report 9767132 (Version 2)
Quarter: 2014Q1

REPORT INFORMATION
  Report Type: Spontaneous
  Country: GB (occurrence: None)
  Receive Date: 20131213
  Receipt Date: 20140107
  Transmission Date: 20141002
  Serious: Yes (Other)
  Sender: FDA-Public Use
  Company Number: 2013GR_BP006778

PATIENT
  Age: 38 Year
  Sex: Male

DRUGS (2)
  1. FINASTERIDE [Suspect]
     Indication: ALOPECIA
     Route: 048
     Dates: start: 20101002, end: 20101028
  2. FINASTERIDE [Suspect]
     Indication: OFF LABEL USE
     Route: 048
     Dates: start: 20101002, end: 20101028

REACTIONS (4)
  - Pollakiuria [None]
  - Off label use [None]
  - Nocturia [None]
  - Pollakiuria [None]
